FAERS Safety Report 13790059 (Version 2)
Quarter: 2019Q1

REPORT INFORMATION
  Report Type: Report from Study
  Country: SI (occurrence: SI)
  Receive Date: 20170725
  Receipt Date: 20190222
  Transmission Date: 20190417
  Serious: Yes (Hospitalization)
  Sender: FDA-Public Use
  Company Number: PHHO2015SI019761

PATIENT
  Age: 65 Year
  Sex: Male
  Weight: 115 kg

DRUGS (2)
  1. ACZ885 [Suspect]
     Active Substance: CANAKINUMAB
     Indication: CARDIOVASCULAR EVENT PROPHYLAXIS
     Dosage: 150 MG, UNK
     Route: 058
     Dates: start: 20131209
  2. ASPIRIN. [Concomitant]
     Active Substance: ASPIRIN
     Indication: ACUTE MYOCARDIAL INFARCTION
     Dosage: 10 MG, (Q24H)
     Route: 048
     Dates: start: 20120328

REACTIONS (8)
  - Crohn^s disease [Recovered/Resolved]
  - Acute kidney injury [Recovered/Resolved]
  - Crohn^s disease [Recovered/Resolved]
  - Peritoneal abscess [Recovered/Resolved]
  - Cholecystitis acute [Recovered/Resolved]
  - Diverticulitis [Recovered/Resolved]
  - Abdominal pain [Recovered/Resolved]
  - Appendicitis [Recovered/Resolved]

NARRATIVE: CASE EVENT DATE: 20140922
